FAERS Safety Report 18981631 (Version 1)
Quarter: 2021Q1

REPORT INFORMATION
  Report Type: Other
  Country: NL (occurrence: NL)
  Receive Date: 20210308
  Receipt Date: 20210308
  Transmission Date: 20210420
  Serious: Yes (Death, Other)
  Sender: FDA-Public Use
  Company Number: NL-ROCHE-2775770

PATIENT

DRUGS (3)
  1. CYCLOPHOSPHAMIDE. [Suspect]
     Active Substance: CYCLOPHOSPHAMIDE
     Indication: ACQUIRED HAEMOPHILIA
     Dosage: 1?2 MG/KG/D
     Route: 065
  2. PREDNISONE. [Suspect]
     Active Substance: PREDNISONE
     Indication: ACQUIRED HAEMOPHILIA
     Route: 065
  3. RITUXIMAB. [Suspect]
     Active Substance: RITUXIMAB
     Indication: ACQUIRED HAEMOPHILIA
     Route: 042

REACTIONS (11)
  - Neutropenia [Unknown]
  - Embolism venous [Unknown]
  - Respiratory tract infection [Unknown]
  - Genitourinary tract infection [Unknown]
  - Steroid diabetes [Unknown]
  - Cerebrovascular accident [Unknown]
  - Infection [Unknown]
  - Pneumonia [Unknown]
  - Infection [Fatal]
  - Sepsis [Unknown]
  - Mental disorder [Unknown]
